FAERS Safety Report 12422842 (Version 1)
Quarter: 2016Q2

REPORT INFORMATION
  Report Type: Report from Study
  Country: ES (occurrence: ES)
  Receive Date: 20160601
  Receipt Date: 20160601
  Transmission Date: 20160815
  Serious: Yes (Hospitalization)
  Sender: FDA-Public Use
  Company Number: ES-ROCHE-1684369

PATIENT
  Age: 72 Year
  Sex: Female
  Weight: 44 kg

DRUGS (13)
  1. BEMIPARIN [Concomitant]
     Dosage: DOSE 7500 UI?INDICATION: ANTICOAGULANT
     Route: 065
     Dates: start: 20150622
  2. MORPHINE [Concomitant]
     Active Substance: MORPHINE
     Dosage: 70 MG/12H?INDICATION: PROPHYLAXIS PAIN
     Route: 065
     Dates: start: 20150622, end: 20160113
  3. ATEZOLIZUMAB [Suspect]
     Active Substance: ATEZOLIZUMAB
     Indication: NON-SMALL CELL LUNG CANCER
     Dosage: MOST RECENT DOSE PRIOR TO THE EVENT: 09/DEC/2015 10:15
     Route: 042
     Dates: start: 20151028
  4. MORPHINE [Concomitant]
     Active Substance: MORPHINE
     Dosage: 400MCG/PRN
     Route: 065
     Dates: start: 20150203
  5. PREGABALIN. [Concomitant]
     Active Substance: PREGABALIN
     Indication: PAIN PROPHYLAXIS
     Dosage: 75 MG/12H
     Route: 065
     Dates: start: 20150622, end: 20160113
  6. RABEPRAZOL [Concomitant]
     Indication: PROPHYLAXIS
     Route: 065
     Dates: start: 20151228
  7. IBUPROFEN. [Concomitant]
     Active Substance: IBUPROFEN
     Dosage: PROPHYLAXIS PAIN
     Route: 065
     Dates: start: 20150706
  8. IPRATROPIUM [Concomitant]
     Active Substance: IPRATROPIUM
     Indication: ASTHMA
     Dosage: FOR ASMA
     Route: 065
     Dates: start: 20150622
  9. LORAZEPAM. [Concomitant]
     Active Substance: LORAZEPAM
     Dosage: INDICATION: ANXIETY PROPHYLAXIS
     Route: 065
     Dates: start: 20150622
  10. NAB-PACLITAXEL [Suspect]
     Active Substance: PACLITAXEL
     Indication: NON-SMALL CELL LUNG CANCER
     Dosage: MOST RECENT DOSE PRIOR TO THE EVENT: 16/DEC/2015 12:45
     Route: 042
     Dates: start: 20151028
  11. CARBOPLATIN. [Suspect]
     Active Substance: CARBOPLATIN
     Indication: NON-SMALL CELL LUNG CANCER
     Dosage: MOST RECENT DOSE PRIOR TO THE EVENT: 09/DEC/2015, DOSE 440 MG 11:45
     Route: 042
     Dates: start: 20151028
  12. METOCLOPRAMIDE. [Concomitant]
     Active Substance: METOCLOPRAMIDE
     Indication: PROPHYLAXIS OF NAUSEA AND VOMITING
     Route: 065
     Dates: start: 20150622
  13. MICONAZOL [Concomitant]
     Active Substance: MICONAZOLE NITRATE
     Dosage: CANDIDIASIS PROPHYLAXIS
     Route: 048
     Dates: start: 20150622

REACTIONS (3)
  - Febrile neutropenia [Recovered/Resolved]
  - Tracheobronchitis [Recovered/Resolved with Sequelae]
  - Respiratory failure [Recovered/Resolved]

NARRATIVE: CASE EVENT DATE: 20151222
